FAERS Safety Report 25771025 (Version 1)
Quarter: 2025Q3

REPORT INFORMATION
  Report Type: Spontaneous
  Country: EU (occurrence: EU)
  Receive Date: 20250908
  Receipt Date: 20250908
  Transmission Date: 20251021
  Serious: Yes (Life-Threatening)
  Sender: ORGANON
  Company Number: None

PATIENT
  Age: 32 Year
  Sex: Male
  Weight: 105 kg

DRUGS (1)
  1. PROSCAR [Suspect]
     Active Substance: FINASTERIDE
     Indication: Androgenetic alopecia
     Route: 048
     Dates: start: 2003, end: 2013

REACTIONS (2)
  - Hepatic steatosis [Recovered/Resolved]
  - Product use in unapproved indication [Unknown]

NARRATIVE: CASE EVENT DATE: 20030101
